FAERS Safety Report 9448134 (Version 2)
Quarter: 2013Q3

REPORT INFORMATION
  Report Type: Spontaneous
  Country: JP (occurrence: None)
  Receive Date: 20130806
  Receipt Date: 20130913
  Transmission Date: 20140515
  Serious: Yes (Other)
  Sender: FDA-Public Use
  Company Number: ABR_01050_2013

PATIENT
  Age: 42 Year
  Sex: Female
  Weight: 64 kg

DRUGS (2)
  1. GLIADEL [Suspect]
     Indication: MALIGNANT GLIOMA
     Dosage: INTRACEREBRAL
     Dates: start: 20130318, end: 20130318
  2. TEMODAL [Suspect]
     Indication: MALIGNANT GLIOMA
     Route: 048
     Dates: start: 20130402, end: 20130514

REACTIONS (4)
  - Bone marrow failure [None]
  - White blood cell count decreased [None]
  - Lymphocyte count decreased [None]
  - Neutrophil count decreased [None]
